FAERS Safety Report 4534283-4 (Version None)
Quarter: 2004Q4

REPORT INFORMATION
  Report Type: 
  Country: None (occurrence: None)
  Receive Date: 20041214
  Receipt Date: 20040819
  Transmission Date: 20050328
  Serious: No
  Sender: FDA-Public Use
  Company Number: 2004230294US

PATIENT
  Sex: Female

DRUGS (7)
  1. BEXTRA [Suspect]
     Indication: ARTHRITIS
     Dosage: 10 MG , QD, ORAL
     Route: 048
     Dates: start: 20040817
  2. MULTIVITIAMIS (PHENTHENOL, RETINOL, ERGOCALCIFERON) [Concomitant]
  3. VITATIM B COMPLEX 9CALCIUM PANTOTHENATE0 [Concomitant]
  4. CLARITI-D (PSEUDOEPHEDRINE SULFATE) [Concomitant]
  5. SUDAFED S.A. [Concomitant]
  6. GLUCOSAMINE/CHONDROITIN [Concomitant]
  7. OIL OF OREGANO [Concomitant]

REACTIONS (3)
  - DRUG INEFFECTIVE [None]
  - MOBILITY DECREASED [None]
  - PAIN EXACERBATED [None]
